FAERS Safety Report 11252551 (Version 1)
Quarter: 2015Q3

REPORT INFORMATION
  Report Type: Spontaneous
  Country: US (occurrence: US)
  Receive Date: 20150708
  Receipt Date: 20150708
  Transmission Date: 20151125
  Serious: No
  Sender: FDA-Public Use
  Company Number: US-GLAXOSMITHKLINE-US2015GSK094908

PATIENT
  Sex: Male

DRUGS (1)
  1. DUTASTERIDE CAPSULE [Suspect]
     Active Substance: DUTASTERIDE
     Indication: PROSTATOMEGALY

REACTIONS (1)
  - Drug ineffective [Unknown]
